FAERS Safety Report 4685283-5 (Version None)
Quarter: 2005Q2

REPORT INFORMATION
  Report Type: 
  Country: None (occurrence: None)
  Receive Date: 20050603
  Receipt Date: 20050524
  Transmission Date: 20051028
  Serious: Yes (Life-Threatening)
  Sender: FDA-Public Use
  Company Number: 2004241777NO

PATIENT
  Age: 68 Year
  Sex: Male

DRUGS (6)
  1. BEXTRA [Suspect]
     Indication: ARTHRALGIA
     Dosage: 10 MG (UNKNOWN); ORAL
     Route: 048
     Dates: end: 20040201
  2. ASPIRIN [Suspect]
     Indication: CORONARY ARTERY DISEASE
     Dosage: 160 MG (UNKNOWN) ORAL
     Route: 048
     Dates: start: 19940101
  3. OMNIC (TAMSULOSIN HYDROCHORIDE) [Concomitant]
  4. ATACAND [Concomitant]
  5. PRAVACHOL [Concomitant]
  6. ATROVENT [Concomitant]

REACTIONS (3)
  - GASTRIC ULCER HAEMORRHAGE [None]
  - HAEMATEMESIS [None]
  - TRANSIENT ISCHAEMIC ATTACK [None]
